FAERS Safety Report 18942423 (Version 1)
Quarter: 2021Q1

REPORT INFORMATION
  Report Type: Spontaneous
  Country: US (occurrence: US)
  Receive Date: 20210225
  Receipt Date: 20210225
  Transmission Date: 20210420
  Serious: Yes (Other)
  Sender: FDA-Public Use
  Company Number: US-SUPERNUS PHARMACEUTICALS, INC.-2021SUP00011

PATIENT
  Sex: Female

DRUGS (3)
  1. TROKENDI XR [Suspect]
     Active Substance: TOPIRAMATE
     Indication: MALFORMATION VENOUS
  2. TROKENDI XR [Suspect]
     Active Substance: TOPIRAMATE
     Indication: CEREBRAL DISORDER
     Dosage: UNK
  3. TROKENDI XR [Suspect]
     Active Substance: TOPIRAMATE
     Indication: CONGENITAL ANOMALY

REACTIONS (1)
  - Intracranial aneurysm [Unknown]
